FAERS Safety Report 15455542 (Version 6)
Quarter: 2019Q1

REPORT INFORMATION
  Report Type: Report from Study
  Country: JP (occurrence: JP)
  Receive Date: 20181002
  Receipt Date: 20190306
  Transmission Date: 20190417
  Serious: Yes (Hospitalization, Other)
  Sender: FDA-Public Use
  Company Number: JP-GLAXOSMITHKLINE-JP2018JPN173532

PATIENT
  Age: 4 Decade
  Sex: Female
  Weight: 32 kg

DRUGS (9)
  1. CELLCEPT [Suspect]
     Active Substance: MYCOPHENOLATE MOFETIL\MYCOPHENOLATE MOFETIL HYDROCHLORIDE
     Indication: SYSTEMIC LUPUS ERYTHEMATOSUS
     Dosage: UNK
     Route: 048
     Dates: end: 20180921
  2. BELIMUMAB SUBCUTANEOUS [Suspect]
     Active Substance: BELIMUMAB
     Indication: SYSTEMIC LUPUS ERYTHEMATOSUS
     Dosage: 200 MG, WE
     Route: 058
     Dates: start: 20180622, end: 20180920
  3. CELLCEPT [Suspect]
     Active Substance: MYCOPHENOLATE MOFETIL\MYCOPHENOLATE MOFETIL HYDROCHLORIDE
     Dosage: UNK
     Route: 048
  4. PREDONINE [Suspect]
     Active Substance: PREDNISOLONE
     Indication: SYSTEMIC LUPUS ERYTHEMATOSUS
     Dosage: 10 MG, 1D
     Route: 048
     Dates: start: 20160205
  5. PROGRAF [Concomitant]
     Active Substance: TACROLIMUS\TACROLIMUS ANHYDROUS
     Indication: SYSTEMIC LUPUS ERYTHEMATOSUS
     Dosage: UNK
  6. PLAQUENIL [Suspect]
     Active Substance: HYDROXYCHLOROQUINE SULFATE
     Indication: SYSTEMIC LUPUS ERYTHEMATOSUS
     Dosage: UNK
     Route: 048
     Dates: end: 20180921
  7. BELIMUMAB SUBCUTANEOUS [Suspect]
     Active Substance: BELIMUMAB
     Dosage: 200 MG, WE
     Route: 058
     Dates: start: 20181019, end: 20181206
  8. ONEALFA TABLETS [Concomitant]
     Dosage: UNK
  9. AROTINOLOL HYDROCHLORIDE [Concomitant]
     Active Substance: AROTINOLOL HYDROCHLORIDE
     Dosage: UNK

REACTIONS (2)
  - Constipation [Not Recovered/Not Resolved]
  - Agranulocytosis [Recovered/Resolved]

NARRATIVE: CASE EVENT DATE: 20180921
